FAERS Safety Report 12822802 (Version 1)
Quarter: 2016Q4

REPORT INFORMATION
  Report Type: Spontaneous
  Country: US (occurrence: US)
  Receive Date: 20161007
  Receipt Date: 20161007
  Transmission Date: 20170207
  Serious: Yes (Other)
  Sender: FDA-Public Use
  Company Number: PHEH2016US025622

PATIENT
  Age: 59 Year
  Sex: Female
  Weight: 67.13 kg

DRUGS (1)
  1. RECLAST [Suspect]
     Active Substance: ZOLEDRONIC ACID
     Indication: OSTEOPOROSIS
     Dosage: 1 DF, UNK
     Route: 042
     Dates: start: 20160922

REACTIONS (1)
  - Uveitis [Unknown]

NARRATIVE: CASE EVENT DATE: 20160928
